FAERS Safety Report 5078586-6 (Version None)
Quarter: 2006Q3

REPORT INFORMATION
  Report Type: 
  Country: None (occurrence: None)
  Receive Date: 20060809
  Receipt Date: 20060809
  Transmission Date: 20061208
  Serious: Yes (Life-Threatening, Disabling, Other)
  Sender: FDA-Public Use
  Company Number: None

PATIENT
  Sex: Male
  Weight: 94.8018 kg

DRUGS (2)
  1. HUMALOG [Suspect]
     Indication: DIABETES MELLITUS
     Dosage: DAILY
  2. LANTUS [Suspect]
     Indication: DIABETES MELLITUS
     Dosage: DAILY

REACTIONS (1)
  - THERAPEUTIC PRODUCT CONTAMINATION [None]
